FAERS Safety Report 8180660-2 (Version None)
Quarter: 2012Q1

REPORT INFORMATION
  Report Type: 
  Country: None (occurrence: None)
  Receive Date: 20120301
  Receipt Date: 20120301
  Transmission Date: 20120608
  Serious: Yes (Life-Threatening)
  Sender: FDA-Public Use
  Company Number: None

PATIENT
  Age: 68 Year
  Sex: Female
  Weight: 68.0396 kg

DRUGS (2)
  1. BONIVA [Suspect]
  2. FOSAMAX [Suspect]

REACTIONS (2)
  - OSTEONECROSIS [None]
  - STOMATITIS [None]
